FAERS Safety Report 5075444-8 (Version None)
Quarter: 2006Q3

REPORT INFORMATION
  Report Type: 
  Country: None (occurrence: None)
  Receive Date: 20060714
  Receipt Date: 20060316
  Transmission Date: 20061208
  Serious: No
  Sender: FDA-Public Use
  Company Number: 2006SP001256

PATIENT
  Age: 65 Year
  Sex: Male
  Weight: 70.3075 kg

DRUGS (12)
  1. LUNESTA [Suspect]
     Indication: INSOMNIA
     Dosage: 3 MG;HS;ORAL
     Route: 048
     Dates: start: 20060301
  2. ZOLOFT [Concomitant]
  3. AMARYL [Concomitant]
  4. METAMUCIL [Concomitant]
  5. ASPIRIN [Concomitant]
  6. AVANDIA [Concomitant]
  7. ALLEGRA [Concomitant]
  8. ZYRTEC [Concomitant]
  9. PREVACID [Concomitant]
  10. LANTUS [Concomitant]
  11. FISH OIL [Concomitant]
  12. MULTIVITAMIN [Concomitant]

REACTIONS (1)
  - MIDDLE INSOMNIA [None]
